FAERS Safety Report 8596339-9 (Version None)
Quarter: 2012Q3

REPORT INFORMATION
  Report Type: 
  Country: None (occurrence: None)
  Receive Date: 20120815
  Receipt Date: 20120810
  Transmission Date: 20120928
  Serious: Yes (Other)
  Sender: FDA-Public Use
  Company Number: CA-ROCHE-1056164

PATIENT
  Sex: Female
  Weight: 85.352 kg

DRUGS (13)
  1. PREDNISONE TAB [Concomitant]
  2. DIOVAN [Concomitant]
  3. ATORVASTATIN [Concomitant]
  4. LEUCOVORIN CALCIUM [Concomitant]
  5. ACTEMRA [Suspect]
     Indication: RHEUMATOID ARTHRITIS
     Route: 042
     Dates: start: 20110606
  6. METHOTREXATE [Concomitant]
  7. VITAMIN D [Concomitant]
  8. RISEDRONATE SODIUM [Concomitant]
  9. FLUTICASONE PROPIONATE [Concomitant]
  10. VENTOLIN [Concomitant]
  11. CLONAZEPAM [Concomitant]
  12. AMLODIPINE [Concomitant]
  13. BISOPROLOL [Concomitant]

REACTIONS (8)
  - BLOOD PRESSURE INCREASED [None]
  - FATIGUE [None]
  - UPPER LIMB FRACTURE [None]
  - PALPITATIONS [None]
  - FALL [None]
  - ORAL MUCOSAL BLISTERING [None]
  - DIZZINESS [None]
  - VOMITING [None]
